FAERS Safety Report 10215213 (Version 1)
Quarter: 2014Q2

REPORT INFORMATION
  Report Type: Report from Study
  Country: BR (occurrence: BR)
  Receive Date: 20140603
  Receipt Date: 20140603
  Transmission Date: 20141212
  Serious: Yes (Hospitalization)
  Sender: FDA-Public Use
  Company Number: PHHY2014BR066895

PATIENT
  Sex: Male
  Weight: 98 kg

DRUGS (14)
  1. ONBREZ [Suspect]
     Indication: EMPHYSEMA
     Dosage: 300 UG, ONCE DAY
     Route: 055
     Dates: start: 2013
  2. MIFLONIDE [Suspect]
     Indication: EMPHYSEMA
     Dosage: 400 UG, BID (TWICE A DAY)
     Dates: start: 2013
  3. FORASEQ [Suspect]
     Indication: EMPHYSEMA
     Dosage: 12 /400 UG, (EVERY 12 HOURS)
     Dates: start: 201402
  4. CLOPIDOGREL [Concomitant]
     Indication: CARDIAC DISORDER
     Dosage: UNK
  5. AAS [Concomitant]
     Indication: COAGULOPATHY
     Dosage: UNK
  6. AMLODIPINE [Concomitant]
     Dosage: UNK
  7. CARVEDILOL [Concomitant]
     Dosage: UNK
  8. LOSARTAN [Concomitant]
     Dosage: UNK
  9. ALDACTONE [Concomitant]
     Dosage: UNK
  10. FUROSEMIDE [Concomitant]
     Dosage: UNK (AFTER THE SURGERY)
  11. XARELTO [Concomitant]
     Dosage: UNK (AFTER THE SURGERY)
  12. ANCORON [Concomitant]
     Dosage: UNK (AFTER THE SURGERY)
  13. METFORMIN [Concomitant]
     Dosage: UNK (AFTER THE SURGERY)
  14. GLIMEPIRIDE [Concomitant]
     Dosage: UNK (AFTER SURGERY)

REACTIONS (2)
  - Malaise [Recovering/Resolving]
  - Dizziness [Recovering/Resolving]
